FAERS Safety Report 15597247 (Version 1)
Quarter: 2018Q4

REPORT INFORMATION
  Report Type: Spontaneous
  Country: CA (occurrence: CA)
  Receive Date: 20181108
  Receipt Date: 20181108
  Transmission Date: 20190205
  Serious: Yes (Death, Other)
  Sender: FDA-Public Use
  Company Number: CA-AMGEN-CANSP2018158394

PATIENT
  Age: 67 Year
  Sex: Male
  Weight: 109 kg

DRUGS (3)
  1. KYPROLIS [Suspect]
     Active Substance: CARFILZOMIB
     Indication: THROMBOTIC THROMBOCYTOPENIC PURPURA
     Dosage: 44 MG, UNK
     Route: 065
  2. KYPROLIS [Suspect]
     Active Substance: CARFILZOMIB
     Indication: CONGENITAL APLASTIC ANAEMIA
  3. KYPROLIS [Suspect]
     Active Substance: CARFILZOMIB
     Indication: HYPERTENSION

REACTIONS (1)
  - Death [Fatal]
